FAERS Safety Report 7320078-5 (Version None)
Quarter: 2011Q1

REPORT INFORMATION
  Report Type: 
  Country: None (occurrence: None)
  Receive Date: 20110228
  Receipt Date: 20110218
  Transmission Date: 20110831
  Serious: Yes (Hospitalization, Other)
  Sender: FDA-Public Use
  Company Number: US-AMGEN-USASP2011009755

PATIENT
  Age: 75 Year
  Sex: Female

DRUGS (1)
  1. ENBREL [Suspect]
     Indication: RHEUMATOID ARTHRITIS
     Dosage: 50 MG, QWK
     Dates: start: 20011020

REACTIONS (6)
  - GAIT DISTURBANCE [None]
  - CONVULSION [None]
  - OSTEOPOROSIS [None]
  - FALL [None]
  - BALANCE DISORDER [None]
  - INFLUENZA [None]
